FAERS Safety Report 7569927-6 (Version None)
Quarter: 2011Q2

REPORT INFORMATION
  Report Type: 
  Country: None (occurrence: None)
  Receive Date: 20110620
  Receipt Date: 20110613
  Transmission Date: 20111010
  Serious: No
  Sender: FDA-Public Use
  Company Number: 2011-00619

PATIENT
  Age: 75 Year
  Sex: Female
  Weight: 71.6683 kg

DRUGS (2)
  1. CALCIUM CARBONATE [Concomitant]
  2. ZICAM COLD REMEDY PLUS LIQUI-LOZ [Suspect]
     Dosage: ^MAYBE 3 WEEKS AGO^
     Dates: start: 20110605, end: 20110606

REACTIONS (1)
  - AGEUSIA [None]
